FAERS Safety Report 16502392 (Version 1)
Quarter: 2019Q3

REPORT INFORMATION
  Report Type: Spontaneous
  Country: DE (occurrence: DE)
  Receive Date: 20190701
  Receipt Date: 20190701
  Transmission Date: 20191004
  Serious: Yes (Death, Hospitalization, Congenital Anomaly, Other)
  Sender: FDA-Public Use
  Company Number: DE-BAUSCH-BL-2019-018275

PATIENT
  Sex: Female
  Weight: 2.97 kg

DRUGS (10)
  1. UTROGEST [Concomitant]
     Active Substance: PROGESTERONE
     Indication: PRODUCT USED FOR UNKNOWN INDICATION
     Dosage: 0-8 GESTATIONAL WEEK, DAILY DOSE:100 MG/D
     Route: 064
     Dates: start: 201010, end: 20101114
  2. APSOMOL [Concomitant]
     Active Substance: ALBUTEROL
     Indication: PRODUCT USED FOR UNKNOWN INDICATION
     Dosage: 13.1-13.6 GESTATIONAL WEEK
     Route: 064
     Dates: start: 20101220, end: 20101225
  3. EMSER NASENSPRAY [Concomitant]
     Indication: PRODUCT USED FOR UNKNOWN INDICATION
     Dosage: 13.1-14 GESTATIONAL WEEK
     Route: 064
     Dates: start: 20101220, end: 20101226
  4. KADEFUNGIN 3 KOMBI-PACKUNG [Concomitant]
     Indication: PRODUCT USED FOR UNKNOWN INDICATION
     Dosage: 2ND TRIMESTER, 3 COMBI-PACK
     Route: 064
  5. L-THYROXIN [Concomitant]
     Active Substance: LEVOTHYROXINE SODIUM
     Indication: PRODUCT USED FOR UNKNOWN INDICATION
     Dosage: 0-40 GESTATIONAL WEEK, DAILY DOSE: 100 MICROGRAM
     Route: 064
     Dates: start: 201010, end: 20110626
  6. METFORMIN [Suspect]
     Active Substance: METFORMIN HYDROCHLORIDE
     Indication: PRODUCT USED FOR UNKNOWN INDICATION
     Dosage: 1000, 0-7 GESTATIONAL WEEK
     Route: 064
     Dates: start: 201009, end: 201011
  7. CETIRIZINE [Suspect]
     Active Substance: CETIRIZINE HYDROCHLORIDE
     Indication: PRODUCT USED FOR UNKNOWN INDICATION
     Route: 064
     Dates: start: 2010, end: 2010
  8. FOLIO FORTE [Concomitant]
     Active Substance: FOLIC ACID\VITAMINS
     Dosage: 0-28.1 GESTATIONAL WEEK, DAILY DOSE: 0.8 MG/D
     Route: 064
     Dates: start: 201010, end: 20110404
  9. EBENOL [Concomitant]
     Indication: PRODUCT USED FOR UNKNOWN INDICATION
     Dosage: 0-8.3 GESTATIONAL WEEK
     Route: 064
     Dates: start: 20101114, end: 20101117
  10. FOLIO FORTE [Concomitant]
     Active Substance: FOLIC ACID\VITAMINS
     Indication: PRODUCT USED FOR UNKNOWN INDICATION
     Dosage: 0-28.1 GESTATIONAL WEEK, DAILY DOSE: 0.8 MG/D
     Route: 064
     Dates: start: 201010, end: 20110404

REACTIONS (5)
  - Low birth weight baby [Unknown]
  - Hypoplastic left heart syndrome [Fatal]
  - Turner^s syndrome [Not Recovered/Not Resolved]
  - Necrotising colitis [Unknown]
  - Maternal exposure during pregnancy [Unknown]

NARRATIVE: CASE EVENT DATE: 201010
